FAERS Safety Report 4659098-8 (Version None)
Quarter: 2005Q2

REPORT INFORMATION
  Report Type: 
  Country: None (occurrence: None)
  Receive Date: 20050511
  Receipt Date: 20050502
  Transmission Date: 20051028
  Serious: Yes (Other)
  Sender: FDA-Public Use
  Company Number: PHNU2005DE01862

PATIENT
  Sex: Female

DRUGS (1)
  1. ZOMETA [Suspect]
     Indication: BREAST CANCER METASTATIC
     Dosage: UNK, UNK
     Dates: start: 20030101, end: 20050301

REACTIONS (8)
  - ASEPTIC NECROSIS BONE [None]
  - GINGIVAL INFECTION [None]
  - GINGIVITIS [None]
  - IMPAIRED HEALING [None]
  - PERIODONTITIS [None]
  - PURULENT DISCHARGE [None]
  - TOOTH DISORDER [None]
  - TOOTH EXTRACTION [None]
